FAERS Safety Report 7281534-1 (Version None)
Quarter: 2011Q1

REPORT INFORMATION
  Report Type: 
  Country: None (occurrence: None)
  Receive Date: 20110208
  Receipt Date: 20110202
  Transmission Date: 20110831
  Serious: Yes (Other)
  Sender: FDA-Public Use
  Company Number: US-AMGEN-USASP2011006503

PATIENT
  Age: 62 Year
  Sex: Male

DRUGS (2)
  1. ENBREL [Suspect]
     Indication: RHEUMATOID ARTHRITIS
     Dosage: 50 MG, QMO
     Dates: start: 20050426, end: 20101101
  2. HUMIRA [Concomitant]
     Indication: RHEUMATOID ARTHRITIS
     Dosage: UNK
     Dates: start: 20101101

REACTIONS (3)
  - DRUG INEFFECTIVE [None]
  - LYME DISEASE [None]
  - ARTHRALGIA [None]
